FAERS Safety Report 19750420 (Version 1)
Quarter: 2021Q3

REPORT INFORMATION
  Report Type: Spontaneous
  Country: US (occurrence: US)
  Receive Date: 20210826
  Receipt Date: 20210826
  Transmission Date: 20211014
  Serious: Yes (Other)
  Sender: FDA-Public Use
  Company Number: US-ORPHANEU-2021003373

PATIENT

DRUGS (1)
  1. UNSPECIFIED PASIREOTIDE [Suspect]
     Active Substance: PASIREOTIDE
     Indication: ACROMEGALY
     Dosage: UNK

REACTIONS (1)
  - Diabetes mellitus [Unknown]
